FAERS Safety Report 5233733-8 (Version None)
Quarter: 2007Q1

REPORT INFORMATION
  Report Type: 
  Country: None (occurrence: None)
  Receive Date: 20061208
  Receipt Date: 20060317
  Transmission Date: 20070707
  Serious: Yes (Other)
  Sender: FDA-Public Use
  Company Number: 2006UW04693

PATIENT
  Age: 67 Year
  Sex: Female
  Weight: 68.038 kg

DRUGS (5)
  1. CRESTOR [Suspect]
     Indication: HYPERCHOLESTEROLAEMIA
     Dosage: 10 MG PO
     Route: 048
     Dates: start: 20060315
  2. ACTOS [Concomitant]
  3. LAMICTAL [Concomitant]
  4. PERCOCET [Concomitant]
  5. ADVIL [Concomitant]

REACTIONS (2)
  - FORMICATION [None]
  - PARAESTHESIA [None]
